FAERS Safety Report 21714678 (Version 1)
Quarter: 2022Q4

REPORT INFORMATION
  Report Type: Spontaneous
  Country: JP (occurrence: JP)
  Receive Date: 20221212
  Receipt Date: 20221212
  Transmission Date: 20230113
  Serious: Yes (Death, Life-Threatening, Hospitalization)
  Sender: FDA-Public Use
  Company Number: JP-DSJP-DSJ-2022-141861

PATIENT
  Age: 74 Year
  Sex: Male
  Weight: 59.3 kg

DRUGS (27)
  1. ENHERTU [Suspect]
     Active Substance: FAM-TRASTUZUMAB DERUXTECAN-NXKI
     Indication: HER2 positive gastric cancer
     Dosage: 5.4 MG/KG, ONCE EVERY 3 WK
     Route: 041
     Dates: start: 20221003, end: 20221003
  2. ENHERTU [Suspect]
     Active Substance: FAM-TRASTUZUMAB DERUXTECAN-NXKI
     Indication: Adenocarcinoma gastric
     Dosage: 5.4 MG/KG, ONCE EVERY 3 WK
     Route: 041
     Dates: start: 20221027, end: 20221027
  3. DENOSUMAB [Concomitant]
     Active Substance: DENOSUMAB
     Indication: Metastases to bone
     Dosage: 120 MG
     Route: 041
     Dates: start: 20220511, end: 20221027
  4. OXYCODONE HYDROCHLORIDE [Concomitant]
     Active Substance: OXYCODONE HYDROCHLORIDE
     Indication: Cancer pain
     Dosage: 10 MG, BID
     Route: 048
     Dates: start: 20220204, end: 20221116
  5. OXYCODONE HYDROCHLORIDE [Concomitant]
     Active Substance: OXYCODONE HYDROCHLORIDE
     Indication: Cancer pain
     Dosage: 2.5 MG, AS NEEDED
     Route: 048
     Dates: start: 20220204, end: 20221116
  6. SYMPROIC [Concomitant]
     Active Substance: NALDEMEDINE
     Indication: Constipation
     Dosage: 0.2 MG, QD
     Route: 048
     Dates: start: 20210629, end: 20221116
  7. VONOPRAZAN FUMARATE [Concomitant]
     Active Substance: VONOPRAZAN FUMARATE
     Indication: Gastric haemorrhage
     Dosage: 20 MG, QD
     Route: 048
     Dates: start: 20210526, end: 20221116
  8. AMLODIPINE BESYLATE [Concomitant]
     Active Substance: AMLODIPINE BESYLATE
     Indication: Hypertension
     Dosage: 5 MG, QD
     Route: 048
     Dates: start: 20210526, end: 20221116
  9. MIRABEGRON [Concomitant]
     Active Substance: MIRABEGRON
     Indication: Hypertonic bladder
     Dosage: 50 MG, QD
     Route: 048
     Dates: start: 20220202, end: 20221116
  10. FUROSEMIDE [Concomitant]
     Active Substance: FUROSEMIDE
     Indication: Oedema
     Dosage: 40 MG, QD
     Route: 048
     Dates: start: 20220209, end: 20221116
  11. MAGNESIUM OXIDE [Concomitant]
     Active Substance: MAGNESIUM OXIDE
     Indication: Constipation
     Dosage: 500 MG, TID
     Route: 048
     Dates: start: 20220209, end: 20221116
  12. SILODOSIN [Concomitant]
     Active Substance: SILODOSIN
     Indication: Hypertonic bladder
     Dosage: 4 MG, BID
     Route: 048
     Dates: start: 20220216, end: 20221116
  13. LIMAPROST [Concomitant]
     Active Substance: LIMAPROST
     Indication: Peripheral coldness
     Dosage: 5 UG, TID
     Route: 048
     Dates: start: 20220414, end: 20221116
  14. MOSAPRIDE [Concomitant]
     Active Substance: MOSAPRIDE
     Indication: Chronic gastritis
     Dosage: 5 MG, TID
     Route: 048
     Dates: start: 20210628, end: 20221116
  15. CALCIUM CARBONATE\CHOLECALCIFEROL\MAGNESIUM CARBONATE [Concomitant]
     Active Substance: CALCIUM CARBONATE\CHOLECALCIFEROL\MAGNESIUM CARBONATE
     Indication: Metastases to bone
     Dosage: 2 DF, QD
     Route: 048
     Dates: start: 20220511, end: 20221116
  16. SPIRONOLACTONE [Concomitant]
     Active Substance: SPIRONOLACTONE
     Indication: Oedema
     Dosage: 25 MG, BID
     Route: 048
     Dates: start: 20210623, end: 20221116
  17. DECADRON [Concomitant]
     Active Substance: DEXAMETHASONE
     Indication: Nausea
     Dosage: 4 MG, QD
     Route: 048
     Dates: start: 20221012, end: 20221028
  18. DECADRON [Concomitant]
     Active Substance: DEXAMETHASONE
     Indication: Vomiting
  19. DOMPERIDONE [Concomitant]
     Active Substance: DOMPERIDONE
     Indication: Nausea
     Dosage: 10 MG, TID
     Route: 048
     Dates: start: 20210628, end: 20221116
  20. PREDONINE [Concomitant]
     Active Substance: PREDNISOLONE
     Indication: Malaise
     Dosage: 20 MG, QD
     Route: 048
     Dates: start: 20221030, end: 20221107
  21. PREDONINE [Concomitant]
     Active Substance: PREDNISOLONE
     Indication: Decreased appetite
  22. APREPITANT [Concomitant]
     Active Substance: APREPITANT
     Indication: Nausea
     Dosage: 125 MG, QD
     Route: 048
     Dates: start: 20221027, end: 20221027
  23. APREPITANT [Concomitant]
     Active Substance: APREPITANT
     Indication: Vomiting
     Dosage: 85 MG, QD
     Route: 048
     Dates: start: 20221028, end: 20221029
  24. SENNOSIDES A AND B [Concomitant]
     Active Substance: SENNOSIDES A AND B
     Indication: Constipation
     Dosage: 24 MG, AS NEEDED
     Route: 048
     Dates: start: 20221027, end: 20221116
  25. DIMEMORFAN PHOSPHATE [Concomitant]
     Active Substance: DIMEMORFAN PHOSPHATE
     Indication: Cough
     Dosage: 10 MG, AS NEEDED
     Route: 048
     Dates: start: 20221027, end: 20221116
  26. CYMBALTA [Concomitant]
     Active Substance: DULOXETINE HYDROCHLORIDE
     Indication: Neuropathy peripheral
     Dosage: 20 MG, QD
     Route: 048
     Dates: start: 20220202, end: 20221026
  27. PREGABALIN [Concomitant]
     Active Substance: PREGABALIN
     Indication: Neuropathy peripheral
     Dosage: 75 MG, BID
     Route: 048
     Dates: start: 20220316, end: 20221026

REACTIONS (10)
  - Interstitial lung disease [Not Recovered/Not Resolved]
  - Thrombocytopenia [Recovering/Resolving]
  - Decreased appetite [Not Recovered/Not Resolved]
  - Disease progression [Fatal]
  - Platelet count decreased [Unknown]
  - Decreased appetite [Unknown]
  - Malaise [Unknown]
  - Nausea [Unknown]
  - Vomiting [Unknown]
  - Underdose [Unknown]

NARRATIVE: CASE EVENT DATE: 20221001
